FAERS Safety Report 21411995 (Version 1)
Quarter: 2022Q4

REPORT INFORMATION
  Report Type: Spontaneous
  Country: PH (occurrence: PH)
  Receive Date: 20221005
  Receipt Date: 20221005
  Transmission Date: 20230113
  Serious: Yes (Hospitalization, Other)
  Sender: FDA-Public Use
  Company Number: PH-PFIZER INC-PV202200075773

PATIENT
  Sex: Female

DRUGS (2)
  1. PROVERA [Suspect]
     Active Substance: MEDROXYPROGESTERONE ACETATE
     Dosage: UNK
  2. PROGESTERONE [Suspect]
     Active Substance: PROGESTERONE
     Dosage: UNK

REACTIONS (2)
  - Abortion spontaneous [Unknown]
  - Product dispensing error [Unknown]
